FAERS Safety Report 15191299 (Version 2)
Quarter: 2018Q3

REPORT INFORMATION
  Report Type: Spontaneous
  Country: SG (occurrence: SG)
  Receive Date: 20180724
  Receipt Date: 20180822
  Transmission Date: 20181010
  Serious: Yes (Other)
  Sender: FDA-Public Use
  Company Number: SG-BAYER-2018-134768

PATIENT
  Age: 20 Year
  Sex: Male

DRUGS (1)
  1. GADOVIST [Suspect]
     Active Substance: GADOBUTROL
     Indication: NUCLEAR MAGNETIC RESONANCE IMAGING HEART
     Dosage: 6 ML, ONCE
     Route: 042
     Dates: start: 20180716, end: 20180716

REACTIONS (5)
  - Urticaria [Recovering/Resolving]
  - Musculoskeletal stiffness [Recovering/Resolving]
  - Periorbital oedema [Recovering/Resolving]
  - Wheezing [Recovering/Resolving]
  - Cough [Recovering/Resolving]

NARRATIVE: CASE EVENT DATE: 20180716
